FAERS Safety Report 5055013-6 (Version None)
Quarter: 2006Q3

REPORT INFORMATION
  Report Type: 
  Country: None (occurrence: None)
  Receive Date: 20060719
  Receipt Date: 20060710
  Transmission Date: 20061208
  Serious: Yes (Other)
  Sender: FDA-Public Use
  Company Number: SE-JNJFOC-20060701619

PATIENT
  Age: 67 Year
  Sex: Female

DRUGS (6)
  1. HALDOL [Suspect]
     Indication: SCHIZOPHRENIA
     Dosage: 2-8MG DAILY
     Route: 048
  2. HALDOL [Suspect]
     Indication: DRUG USE FOR UNKNOWN INDICATION
     Route: 042
  3. LITHIONIT [Suspect]
     Indication: SCHIZOPHRENIA
     Route: 048
  4. ZYPREXA [Concomitant]
  5. PROPAVAN [Concomitant]
  6. ERGENYL RETARD [Concomitant]

REACTIONS (2)
  - EXTRAPYRAMIDAL DISORDER [None]
  - RENAL FAILURE [None]
